FAERS Safety Report 8384253-3 (Version None)
Quarter: 2012Q2

REPORT INFORMATION
  Report Type: 
  Country: None (occurrence: None)
  Receive Date: 20120524
  Receipt Date: 20120514
  Transmission Date: 20120825
  Serious: Yes (Congenital Anomaly)
  Sender: FDA-Public Use
  Company Number: DE-TEVA-338766GER

PATIENT

DRUGS (6)
  1. FOSFOMYCIN [Concomitant]
     Route: 064
  2. PREDNISONE [Concomitant]
     Route: 064
  3. TACROLIMUS [Concomitant]
     Route: 064
  4. MYCOPHENOLATE MOFETIL [Suspect]
     Route: 064
  5. MYCOPHENOLATE MOFETIL [Suspect]
     Indication: RENAL TRANSPLANT
     Route: 064
  6. AZATHIOPRINE [Concomitant]
     Route: 064

REACTIONS (2)
  - CONGENITAL HYDRONEPHROSIS [None]
  - AUTISM [None]
